FAERS Safety Report 7424843 (Version 4)
Quarter: 2014Q3

REPORT INFORMATION
  Report Type: Spontaneous
  Country: JP (occurrence: JP)
  Receive Date: 20100618
  Receipt Date: 20140805
  Transmission Date: 20150326
  Serious: Yes (Hospitalization)
  Sender: FDA-Public Use
  Company Number: PHHY2010JP37396

PATIENT
  Age: 84 Year
  Sex: Female

DRUGS (1)
  1. GLIVEC [Suspect]
     Active Substance: IMATINIB MESYLATE
     Indication: CHRONIC MYELOID LEUKAEMIA
     Dosage: 400 MG, PER DAY
     Route: 048
     Dates: start: 20100519, end: 20100607

REACTIONS (5)
  - Renal disorder [Recovered/Resolved]
  - Pyrexia [Recovering/Resolving]
  - Renal impairment [Unknown]
  - Encephalitis viral [Recovering/Resolving]
  - Altered state of consciousness [Recovering/Resolving]

NARRATIVE: CASE EVENT DATE: 20100519
